FAERS Safety Report 7671320-2 (Version None)
Quarter: 2011Q3

REPORT INFORMATION
  Report Type: 
  Country: None (occurrence: None)
  Receive Date: 20110809
  Receipt Date: 20110801
  Transmission Date: 20111222
  Serious: Yes (Life-Threatening, Hospitalization, Disabling)
  Sender: FDA-Public Use
  Company Number: NO-TEVA-283681ISR

PATIENT
  Age: 15 Year
  Sex: Female

DRUGS (4)
  1. DOXORUBICIN HCL [Suspect]
     Indication: BONE SARCOMA
     Dosage: 75 MG/M (4-HOUR CONTINUOUS INFUSION)
  2. CISPLATIN [Suspect]
     Indication: BONE SARCOMA
     Dosage: 90 MG/M (48-HOUR CONTINUOUS INFUSION)
  3. IFOSFAMIDE [Suspect]
     Indication: BONE SARCOMA
     Dosage: 2 G/M /DAY FOR 5 DAYS
  4. METHOTREXATE [Suspect]
     Indication: BONE SARCOMA
     Dosage: 12 G/M (4-HOUR INFUSION)

REACTIONS (2)
  - CARDIAC FUNCTION DISTURBANCE POSTOPERATIVE [None]
  - CARDIOTOXICITY [None]
